FAERS Safety Report 21031721 (Version 1)
Quarter: 2022Q3

REPORT INFORMATION
  Report Type: Other
  Country: US (occurrence: None)
  Receive Date: 20220701
  Receipt Date: 20220701
  Transmission Date: 20221027
  Serious: No
  Sender: FDA-Public Use
  Company Number: US-ROCHE-3038520

PATIENT
  Age: 24 Year
  Sex: Male

DRUGS (5)
  1. TOCILIZUMAB [Suspect]
     Active Substance: TOCILIZUMAB
     Indication: Acute respiratory distress syndrome
     Route: 065
  2. DEXAMETHASONE [Concomitant]
     Active Substance: DEXAMETHASONE
  3. VANCOMYCIN [Concomitant]
     Active Substance: VANCOMYCIN
  4. CEFEPIME [Concomitant]
     Active Substance: CEFEPIME HYDROCHLORIDE
  5. PROPOFOL [Concomitant]
     Active Substance: PROPOFOL

REACTIONS (2)
  - Off label use [Unknown]
  - No adverse event [Unknown]
